FAERS Safety Report 15710044 (Version 2)
Quarter: 2018Q4

REPORT INFORMATION
  Report Type: Spontaneous
  Country: TW (occurrence: TW)
  Receive Date: 20181211
  Receipt Date: 20181217
  Transmission Date: 20190205
  Serious: Yes (Hospitalization, Other)
  Sender: FDA-Public Use
  Company Number: TW-ALEMBIC PHARMACUETICALS LIMITED-2018SCAL000909

PATIENT

DRUGS (1)
  1. LITHIUM CARBONATE. [Suspect]
     Active Substance: LITHIUM CARBONATE
     Indication: BIPOLAR DISORDER
     Dosage: UNK

REACTIONS (10)
  - Blood pressure systolic decreased [Recovering/Resolving]
  - Choking [Recovering/Resolving]
  - Coma scale abnormal [Unknown]
  - Arrhythmia [Recovering/Resolving]
  - Dysarthria [Recovering/Resolving]
  - Altered state of consciousness [Recovering/Resolving]
  - Toxicity to various agents [Recovering/Resolving]
  - Cardiogenic shock [Recovering/Resolving]
  - Bradycardia [Recovering/Resolving]
  - Atrioventricular block first degree [Recovering/Resolving]
